FAERS Safety Report 23376034 (Version 1)
Quarter: 2024Q1

REPORT INFORMATION
  Report Type: Report from Study
  Country: US (occurrence: US)
  Receive Date: 20240108
  Receipt Date: 20240108
  Transmission Date: 20240409
  Serious: No
  Sender: FDA-Public Use
  Company Number: US-OPELLA-2024OHG000243

PATIENT
  Age: 75 Year
  Sex: Female

DRUGS (2)
  1. ASPERCREME WITH LIDOCAINE [Suspect]
     Active Substance: LIDOCAINE
     Route: 065
  2. ICY HOT MEDICATED NO MESS APPLICATOR [Suspect]
     Active Substance: MENTHOL
     Route: 065

REACTIONS (3)
  - Burning sensation [Unknown]
  - Pain [Unknown]
  - Drug ineffective [Unknown]
